FAERS Safety Report 5520695-9 (Version None)
Quarter: 2007Q4

REPORT INFORMATION
  Report Type: 
  Country: None (occurrence: None)
  Receive Date: 20071119
  Receipt Date: 20071105
  Transmission Date: 20080405
  Serious: Yes (Other)
  Sender: FDA-Public Use
  Company Number: GB-PFIZER INC-2007094362

PATIENT
  Age: 57 Year
  Sex: Female

DRUGS (3)
  1. CHAMPIX [Suspect]
     Indication: SMOKING CESSATION THERAPY
     Route: 048
  2. ESTRADERM [Concomitant]
  3. OMEPRAZOLE [Concomitant]

REACTIONS (6)
  - ABDOMINAL PAIN [None]
  - ARTHRALGIA [None]
  - EAR PAIN [None]
  - INSOMNIA [None]
  - NAUSEA [None]
  - RESTLESS LEGS SYNDROME [None]
